FAERS Safety Report 9511027 (Version 1)
Quarter: 2013Q1

REPORT INFORMATION
  Report Type: Spontaneous
  Country: US (occurrence: None)
  Receive Date: 20130305
  Receipt Date: 20130305
  Transmission Date: 20140127
  Serious: Yes (Other)
  Sender: FDA-Public Use
  Company Number: 163-21880-12021206

PATIENT
  Age: 78 Year
  Sex: Male

DRUGS (5)
  1. REVLIMID (LENALIDOMIDE) (25 MILLIGRAM, CAPSULES) [Suspect]
     Indication: PLASMA CELL MYELOMA
     Dosage: DAILY X 21D/28D
     Route: 048
     Dates: start: 201010, end: 201109
  2. FAMOTIDINE [Concomitant]
  3. HYDROCODONE/APAP [Concomitant]
  4. AMLODIPINE [Concomitant]
  5. ASA [Concomitant]

REACTIONS (1)
  - Colitis ischaemic [None]
